FAERS Safety Report 4536630-6 (Version None)
Quarter: 2004Q4

REPORT INFORMATION
  Report Type: 
  Country: None (occurrence: None)
  Receive Date: 20041223
  Receipt Date: 20030728
  Transmission Date: 20050328
  Serious: Yes (Death)
  Sender: FDA-Public Use
  Company Number: 200317386GDDC

PATIENT
  Age: 79 Year
  Sex: Male
  Weight: 104.54 kg

DRUGS (17)
  1. LEVOFLOXACIN [Suspect]
     Indication: PNEUMONIA ASPIRATION
     Route: 042
     Dates: start: 20030226, end: 20030226
  2. GLYBURIDE [Suspect]
     Indication: DIABETES MELLITUS
     Route: 048
     Dates: start: 20030222
  3. CITALOPRAM [Concomitant]
     Dates: start: 20030207
  4. NITROGLYCERIN [Concomitant]
     Route: 003
     Dates: start: 20030126
  5. ALLOPURINOL [Concomitant]
     Route: 048
     Dates: start: 20030126
  6. ASPIRIN [Concomitant]
     Route: 048
     Dates: start: 20030126
  7. ATENOLOL [Concomitant]
     Route: 048
  8. PLAVIX [Concomitant]
     Route: 048
     Dates: start: 20030126
  9. DILTIAZEM [Concomitant]
     Dates: start: 20030126
  10. DOXAZOSIN [Concomitant]
     Route: 048
     Dates: start: 20030126
  11. FLUCONAZOLE [Concomitant]
     Route: 048
     Dates: start: 20030126
  12. LEVOTHYROXINE SODIUM [Concomitant]
     Route: 048
     Dates: start: 20030126
  13. METOCLOPRAMIDE [Concomitant]
     Route: 048
     Dates: start: 20030204
  14. MIRTAZAPINE [Concomitant]
     Route: 048
     Dates: start: 20030224
  15. PANTOPRAZOLE [Concomitant]
     Route: 048
     Dates: start: 20030210
  16. SIMVASTATIN [Concomitant]
     Route: 048
     Dates: start: 20030126
  17. SODIUM BICARBONATE [Concomitant]
     Route: 048
     Dates: start: 20030210

REACTIONS (7)
  - BLOOD GLUCOSE FLUCTUATION [None]
  - COMA [None]
  - DECREASED APPETITE [None]
  - DRUG INTERACTION [None]
  - GENERAL PHYSICAL HEALTH DETERIORATION [None]
  - HYPOGLYCAEMIA [None]
  - INFECTION [None]
